FAERS Safety Report 23262541 (Version 3)
Quarter: 2024Q1

REPORT INFORMATION
  Report Type: Spontaneous
  Country: US (occurrence: US)
  Receive Date: 20231205
  Receipt Date: 20240112
  Transmission Date: 20240410
  Serious: No
  Sender: FDA-Public Use
  Company Number: US-PFIZER INC-PV202300170027

PATIENT
  Age: 84 Year
  Sex: Female

DRUGS (1)
  1. LORBRENA [Suspect]
     Active Substance: LORLATINIB
     Indication: Non-small cell lung cancer
     Dosage: TAKE TWO TABLETS WHOLE WITH WATER, WITH OR WITHOUT FOOD AT THE SAME TIME EACH DAY
     Route: 048
     Dates: start: 20220127

REACTIONS (1)
  - Hypertension [Recovered/Resolved]
